FAERS Safety Report 7207078-0 (Version None)
Quarter: 2011Q1

REPORT INFORMATION
  Report Type: 
  Country: None (occurrence: None)
  Receive Date: 20110103
  Receipt Date: 20101221
  Transmission Date: 20110831
  Serious: Yes (Other)
  Sender: FDA-Public Use
  Company Number: B0691631A

PATIENT
  Age: 28 Year
  Sex: Female

DRUGS (5)
  1. PROPRANOLOL [Suspect]
     Route: 065
  2. AMOXICILLIN AND CLAVULANATE POTASSIUM [Suspect]
     Route: 042
  3. LUGOL'S IODINE [Suspect]
  4. CARBIMAZOLE [Suspect]
     Route: 065
  5. FUROSEMIDE [Suspect]
     Route: 065

REACTIONS (2)
  - DRUG EXPOSURE DURING PREGNANCY [None]
  - STILLBIRTH [None]
